FAERS Safety Report 11335951 (Version 1)
Quarter: 2015Q3

REPORT INFORMATION
  Report Type: Spontaneous
  Country: US (occurrence: US)
  Receive Date: 20150804
  Receipt Date: 20150804
  Transmission Date: 20151125
  Serious: Yes (Other)
  Sender: FDA-Public Use
  Company Number: US-BAYER-2015-387132

PATIENT
  Age: 69 Year
  Sex: Male
  Weight: 90.53 kg

DRUGS (1)
  1. AVELOX [Suspect]
     Active Substance: MOXIFLOXACIN HYDROCHLORIDE
     Dosage: UNK

REACTIONS (3)
  - Drug hypersensitivity [None]
  - Myalgia [None]
  - Tendonitis [None]

NARRATIVE: CASE EVENT DATE: 20100427
